FAERS Safety Report 21746836 (Version 1)
Quarter: 2022Q4

REPORT INFORMATION
  Report Type: Spontaneous
  Country: FR (occurrence: FR)
  Receive Date: 20221219
  Receipt Date: 20221219
  Transmission Date: 20230113
  Serious: Yes (Death, Other)
  Sender: FDA-Public Use
  Company Number: FR-BRISTOL-MYERS SQUIBB COMPANY-2022-154507

PATIENT
  Age: 81 Year
  Sex: Female

DRUGS (1)
  1. IPILIMUMAB [Suspect]
     Active Substance: IPILIMUMAB
     Indication: Metastatic malignant melanoma
     Route: 042

REACTIONS (4)
  - Generalised oedema [Fatal]
  - Immune-mediated hypothyroidism [Unknown]
  - Immune-mediated enterocolitis [Unknown]
  - Vitiligo [Unknown]
